FAERS Safety Report 6253472-4 (Version None)
Quarter: 2009Q3

REPORT INFORMATION
  Report Type: 
  Country: None (occurrence: None)
  Receive Date: 20090701
  Receipt Date: 20090629
  Transmission Date: 20100115
  Serious: Yes (Other)
  Sender: FDA-Public Use
  Company Number: AT-ROXANE LABORATORIES, INC.-2009-RO-00634RO

PATIENT
  Age: 2 Year
  Sex: Male

DRUGS (8)
  1. DEXAMETHASONE [Suspect]
     Indication: ACUTE LYMPHOCYTIC LEUKAEMIA
  2. AMPHOTERICIN B [Suspect]
     Indication: INFECTION PROPHYLAXIS
     Route: 048
  3. TRIMETHOPRIM/SULPHAMETHOXAZOLE [Suspect]
     Indication: INFECTION PROPHYLAXIS
  4. FLUCONAZOLE [Concomitant]
     Indication: BRAIN ABSCESS
  5. PENTAMIDINE ISETHIONATE [Concomitant]
     Indication: BRAIN ABSCESS
  6. MILTEFOSINE [Concomitant]
     Indication: BRAIN ABSCESS
  7. AMPHOTERICIN B [Concomitant]
     Indication: BRAIN ABSCESS
  8. HYPERBARIC OXYGEN [Concomitant]
     Indication: BRAIN ABSCESS

REACTIONS (4)
  - ACANTHAMOEBA INFECTION [None]
  - BRAIN ABSCESS [None]
  - CSF PROTEIN INCREASED [None]
  - PLEOCYTOSIS [None]
